FAERS Safety Report 5595105-6 (Version None)
Quarter: 2008Q1

REPORT INFORMATION
  Report Type: 
  Country: None (occurrence: None)
  Receive Date: 20080117
  Receipt Date: 20080108
  Transmission Date: 20080703
  Serious: Yes (Hospitalization)
  Sender: FDA-Public Use
  Company Number: SE-ROXANE LABORATORIES, INC-2008-BP-00350RO

PATIENT
  Age: 64 Year
  Sex: Male

DRUGS (8)
  1. AZATHIOPRINE [Suspect]
     Indication: SYSTEMIC SCLEROSIS
     Dates: start: 19970201, end: 20010601
  2. AZATHIOPRINE [Suspect]
     Dates: end: 20031201
  3. AZATHIOPRINE [Suspect]
     Dates: start: 20031201, end: 20050901
  4. AZATHIOPRINE [Suspect]
     Dates: start: 20050901, end: 20060901
  5. AZATHIOPRINE [Suspect]
     Dates: start: 20060901
  6. CYCLOPHOSPHAMIDE [Suspect]
     Indication: SYSTEMIC SCLEROSIS
     Dates: start: 19951101
  7. CYCLOPHOSPHAMIDE [Suspect]
     Route: 042
     Dates: start: 19960301, end: 19960401
  8. CYCLOPHOSPHAMIDE [Suspect]
     Route: 048
     Dates: start: 19960401, end: 19970201

REACTIONS (2)
  - HAEMATURIA [None]
  - SKIN HYPERTROPHY [None]
